FAERS Safety Report 24960703 (Version 1)
Quarter: 2025Q1

REPORT INFORMATION
  Report Type: Report from Study
  Country: US (occurrence: US)
  Receive Date: 20250212
  Receipt Date: 20250212
  Transmission Date: 20250408
  Serious: Yes (Death)
  Sender: MYLAN
  Company Number: US-MYLANLABS-2025M1011876

PATIENT
  Age: 9 Year
  Sex: Female

DRUGS (8)
  1. VORICONAZOLE [Suspect]
     Active Substance: VORICONAZOLE
     Indication: Antifungal treatment
     Route: 065
  2. VORICONAZOLE [Suspect]
     Active Substance: VORICONAZOLE
     Indication: Mucormycosis
  3. AMPHOTERICIN B [Suspect]
     Active Substance: AMPHOTERICIN B
     Indication: Antifungal treatment
     Route: 065
  4. AMPHOTERICIN B [Suspect]
     Active Substance: AMPHOTERICIN B
     Indication: Mucormycosis
  5. CASPOFUNGIN [Suspect]
     Active Substance: CASPOFUNGIN
     Indication: Antifungal treatment
     Route: 065
  6. CASPOFUNGIN [Suspect]
     Active Substance: CASPOFUNGIN
     Indication: Mucormycosis
  7. POSACONAZOLE [Suspect]
     Active Substance: POSACONAZOLE
     Indication: Antifungal treatment
     Route: 065
  8. POSACONAZOLE [Suspect]
     Active Substance: POSACONAZOLE
     Indication: Mucormycosis

REACTIONS (2)
  - Drug ineffective for unapproved indication [Fatal]
  - Off label use [Unknown]
